FAERS Safety Report 4941881-2 (Version None)
Quarter: 2006Q1

REPORT INFORMATION
  Report Type: 
  Country: None (occurrence: None)
  Receive Date: 20060308
  Receipt Date: 20060223
  Transmission Date: 20060701
  Serious: Yes (Hospitalization, Other)
  Sender: FDA-Public Use
  Company Number: 2006007204

PATIENT
  Age: 42 Year
  Sex: Female
  Weight: 72.5755 kg

DRUGS (3)
  1. ACCUPRIL [Suspect]
     Indication: CARDIAC DISORDER
     Dosage: 40 MG (40 MG, 1 IN 1 D), UNKNOWN
     Route: 065
     Dates: start: 20020101
  2. COREG [Concomitant]
  3. DRUG, UNSPECIFIED (DRUG, UNSPECIFIED) [Concomitant]

REACTIONS (11)
  - CONVULSION [None]
  - DEVICE FAILURE [None]
  - EMBOLIC STROKE [None]
  - ENDOCARDITIS [None]
  - INFECTION [None]
  - INJURY [None]
  - MEMORY IMPAIRMENT [None]
  - NERVOUS SYSTEM DISORDER [None]
  - POSTOPERATIVE WOUND INFECTION [None]
  - STAPHYLOCOCCAL INFECTION [None]
  - SURGICAL PROCEDURE REPEATED [None]
